FAERS Safety Report 25046584 (Version 2)
Quarter: 2025Q1

REPORT INFORMATION
  Report Type: Report from Study
  Country: ES (occurrence: ES)
  Receive Date: 20250306
  Receipt Date: 20250329
  Transmission Date: 20250409
  Serious: Yes (Death, Life-Threatening, Hospitalization, Other)
  Sender: AUROBINDO
  Company Number: ES-PFIZER INC-202500034873

PATIENT
  Age: 59 Year
  Sex: Male

DRUGS (12)
  1. BORTEZOMIB [Suspect]
     Active Substance: BORTEZOMIB
     Indication: Lymphadenopathy
     Route: 065
  2. BENDAMUSTINE [Suspect]
     Active Substance: BENDAMUSTINE
     Indication: Granulomatous lymphadenitis
     Route: 065
  3. DOXORUBICIN [Suspect]
     Active Substance: DOXORUBICIN
     Indication: Diffuse large B-cell lymphoma
     Route: 065
  4. RITUXIMAB [Suspect]
     Active Substance: RITUXIMAB
     Indication: Diffuse large B-cell lymphoma
     Route: 065
  5. RITUXIMAB [Suspect]
     Active Substance: RITUXIMAB
     Indication: Granulomatous lymphadenitis
     Dosage: 375 MG/M2, EVERY WEEK
     Route: 065
  6. RITUXIMAB [Suspect]
     Active Substance: RITUXIMAB
     Indication: Lymphadenopathy
     Route: 065
  7. THALIDOMIDE [Suspect]
     Active Substance: THALIDOMIDE
     Indication: Lymphadenopathy
     Dosage: 50 MILLIGRAM, ONCE A DAY
     Route: 065
  8. VINCRISTINE SULFATE [Suspect]
     Active Substance: VINCRISTINE SULFATE
     Indication: Diffuse large B-cell lymphoma
     Route: 065
  9. CYCLOPHOSPHAMIDE [Suspect]
     Active Substance: CYCLOPHOSPHAMIDE
     Indication: Diffuse large B-cell lymphoma
     Route: 065
  10. PREDNISONE [Suspect]
     Active Substance: PREDNISONE
     Indication: Diffuse large B-cell lymphoma
     Route: 065
  11. PREDNISONE [Suspect]
     Active Substance: PREDNISONE
     Indication: Lymphadenopathy
  12. PREDNISONE [Concomitant]
     Active Substance: PREDNISONE
     Indication: Lymphadenopathy
     Dosage: 30 MILLIGRAM, ONCE A DAY
     Route: 065

REACTIONS (6)
  - Enterococcal bacteraemia [Fatal]
  - Acute respiratory distress syndrome [Fatal]
  - Pancytopenia [Unknown]
  - Bacterial infection [Unknown]
  - Subcutaneous abscess [Unknown]
  - Septic shock [Unknown]
